FAERS Safety Report 5942583-6 (Version None)
Quarter: 2008Q4

REPORT INFORMATION
  Report Type: 
  Country: None (occurrence: None)
  Receive Date: 20081105
  Receipt Date: 20081027
  Transmission Date: 20090506
  Serious: Yes (Other)
  Sender: FDA-Public Use
  Company Number: US-PFIZER INC-2008092131

PATIENT

DRUGS (1)
  1. CELEBREX [Suspect]
     Dates: start: 20060401

REACTIONS (2)
  - HIP ARTHROPLASTY [None]
  - STENT PLACEMENT [None]
